FAERS Safety Report 7938098 (Version 5)
Quarter: 2014Q4

REPORT INFORMATION
  Report Type: Report from Study
  Country: TW (occurrence: TW)
  Receive Date: 20110510
  Receipt Date: 20141231
  Transmission Date: 20150529
  Serious: Yes (Death, Hospitalization)
  Sender: FDA-Public Use
  Company Number: PHHY2011TW38276

PATIENT
  Age: 80 Year
  Sex: Male

DRUGS (1)
  1. ICL670A [Suspect]
     Active Substance: DEFERASIROX
     Indication: IRON OVERLOAD
     Dosage: 1750 MG, QD
     Route: 048
     Dates: start: 20101021, end: 20110209

REACTIONS (13)
  - Wheezing [Fatal]
  - Proteinuria [Fatal]
  - Oedema [Fatal]
  - Fanconi syndrome acquired [Fatal]
  - Pyrexia [Fatal]
  - Cardiac arrest [Fatal]
  - Cardiac failure [Fatal]
  - Altered state of consciousness [Fatal]
  - Dyspnoea [Fatal]
  - Vasculitis [Fatal]
  - Pyuria [Fatal]
  - Hypokalaemia [Fatal]
  - Urinary tract infection [Fatal]

NARRATIVE: CASE EVENT DATE: 20110405
